FAERS Safety Report 6073628-3 (Version None)
Quarter: 2009Q1

REPORT INFORMATION
  Report Type: 
  Country: None (occurrence: None)
  Receive Date: 20090211
  Receipt Date: 20090130
  Transmission Date: 20090719
  Serious: Yes (Other)
  Sender: FDA-Public Use
  Company Number: US-PFIZER INC-2009163116

PATIENT
  Age: 23 Year
  Sex: Female
  Weight: 61 kg

DRUGS (3)
  1. BLINDED *PLACEBO [Suspect]
     Indication: RENAL CANCER
     Dosage: 12.5 MG, 4X/DAY CYCLIC
     Route: 048
     Dates: start: 20061220
  2. BLINDED *SORAFENIB [Suspect]
     Indication: RENAL CANCER
     Dosage: 12.5 MG, 4X/DAY CYCLIC
     Route: 048
     Dates: start: 20061220
  3. BLINDED SUNITINIB MALATE [Suspect]
     Indication: RENAL CANCER
     Dosage: 12.5 MG, 4X/DAY CYCLIC
     Route: 048
     Dates: start: 20061220

REACTIONS (1)
  - COGNITIVE DISORDER [None]
